FAERS Safety Report 5410250-3 (Version None)
Quarter: 2007Q3

REPORT INFORMATION
  Report Type: 
  Country: None (occurrence: None)
  Receive Date: 20070808
  Receipt Date: 20070730
  Transmission Date: 20080115
  Serious: Yes (Other)
  Sender: FDA-Public Use
  Company Number: 07H-163-0312951-00

PATIENT
  Age: 20 Year
  Sex: Male
  Weight: 73 kg

DRUGS (3)
  1. PROPOFOL [Suspect]
     Indication: SEDATIVE THERAPY
     Dosage: SEE IMAGE
     Route: 042
  2. MEPERIDINE HCL                               (MEPERIDINE HYDROCHLORIDE [Suspect]
     Indication: PREMEDICATION
     Dosage: 50 MG, INTRAMUSCULAR; 4:50AM
     Route: 030
  3. PROMETHAZINE HCL [Suspect]
     Indication: PREMEDICATION
     Dosage: 50 MG, INTRAMUSCULAR
     Route: 030

REACTIONS (7)
  - AGGRESSION [None]
  - AGITATION [None]
  - ANTICHOLINERGIC SYNDROME [None]
  - CONFUSIONAL STATE [None]
  - DRUG EFFECT DECREASED [None]
  - DRUG INTERACTION [None]
  - INCOHERENT [None]
